APPROVED DRUG PRODUCT: SULFALOID
Active Ingredient: TRISULFAPYRIMIDINES (SULFADIAZINE;SULFAMERAZINE;SULFAMETHAZINE)
Strength: 167MG;167MG;167MG
Dosage Form/Route: TABLET;ORAL
Application: A080099 | Product #001
Applicant: FOREST PHARMACEUTICALS INC
Approved: Approved Prior to Jan 1, 1982 | RLD: No | RS: No | Type: DISCN